FAERS Safety Report 5811960-6 (Version None)
Quarter: 2008Q3

REPORT INFORMATION
  Report Type: 
  Country: None (occurrence: None)
  Receive Date: 20080716
  Receipt Date: 20080709
  Transmission Date: 20090109
  Serious: Yes (Other)
  Sender: FDA-Public Use
  Company Number: US-BAXTER-2008BH007238

PATIENT
  Sex: Male

DRUGS (2)
  1. HEPARIN SODIUM INJECTION [Suspect]
     Indication: VASCULAR GRAFT
     Dosage: DOSE UNIT:UNKNOWN
     Route: 065
     Dates: start: 20071101
  2. HEPARIN SODIUM INJECTION [Suspect]
     Indication: AORTIC VALVE REPAIR
     Dosage: DOSE UNIT:UNKNOWN
     Route: 065
     Dates: start: 20071101

REACTIONS (3)
  - COMA [None]
  - MUSCULAR WEAKNESS [None]
  - SHOCK [None]
